FAERS Safety Report 13744958 (Version 1)
Quarter: 2017Q3

REPORT INFORMATION
  Report Type: Spontaneous
  Country: US (occurrence: US)
  Receive Date: 20170711
  Receipt Date: 20170711
  Transmission Date: 20171127
  Serious: No
  Sender: FDA-Public Use
  Company Number: None

PATIENT
  Age: 73 Year
  Sex: Male
  Weight: 66.6 kg

DRUGS (3)
  1. HYDROXYZINE HCL 25 MG [Suspect]
     Active Substance: HYDROXYZINE HYDROCHLORIDE
     Indication: TRANSIENT ACANTHOLYTIC DERMATOSIS
     Dosage: ?          OTHER STRENGTH:MG;QUANTITY:80 TABLET(S);?
     Route: 048
     Dates: start: 20170606, end: 20170628
  2. BABY ASA [Concomitant]
     Active Substance: ASPIRIN
  3. INSULIN [Concomitant]
     Active Substance: INSULIN NOS

REACTIONS (4)
  - Vomiting [None]
  - Drug ineffective [None]
  - Chest pain [None]
  - Product substitution issue [None]

NARRATIVE: CASE EVENT DATE: 20170621
